FAERS Safety Report 7940425-0 (Version None)
Quarter: 2011Q4

REPORT INFORMATION
  Report Type: 
  Country: None (occurrence: None)
  Receive Date: 20111128
  Receipt Date: 20111121
  Transmission Date: 20120403
  Serious: Yes (Hospitalization)
  Sender: FDA-Public Use
  Company Number: US-BRISTOL-MYERS SQUIBB COMPANY-16241309

PATIENT
  Age: 82 Year
  Sex: Male
  Weight: 77 kg

DRUGS (3)
  1. ERBITUX [Suspect]
     Indication: NON-SMALL CELL LUNG CANCER
     Dosage: LAST ADMIN:31OCT11. CONCURRENT PHASE: 7 WEEKS
     Dates: start: 20110919, end: 20111031
  2. CARBOPLATIN [Suspect]
     Indication: NON-SMALL CELL LUNG CANCER
     Dosage: LAST ADMIN:31OCT11.
     Dates: start: 20110919, end: 20111031
  3. TAXOL [Suspect]
     Indication: NON-SMALL CELL LUNG CANCER
     Dosage: LAST ADMIN:31OCT11
     Dates: start: 20110919, end: 20111031

REACTIONS (4)
  - DYSPNOEA [None]
  - PYREXIA [None]
  - PNEUMONIA [None]
  - CHILLS [None]
